FAERS Safety Report 9455300 (Version 1)
Quarter: 2013Q3

REPORT INFORMATION
  Report Type: Spontaneous
  Country: US (occurrence: US)
  Receive Date: 20130813
  Receipt Date: 20130813
  Transmission Date: 20140515
  Serious: Yes (Other)
  Sender: FDA-Public Use
  Company Number: US-JNJFOC-20130802548

PATIENT
  Age: 28 Year
  Sex: Female
  Weight: 61.69 kg

DRUGS (4)
  1. ORTHO EVRA [Suspect]
     Indication: NEOPLASM PROPHYLAXIS
     Route: 062
     Dates: start: 2012
  2. ORTHO EVRA [Suspect]
     Indication: NEOPLASM PROPHYLAXIS
     Dosage: STARTED 13 YEARS AGO
     Route: 062
  3. ORTHO EVRA [Suspect]
     Indication: CONTRACEPTION
     Route: 062
     Dates: start: 2012
  4. ORTHO EVRA [Suspect]
     Indication: CONTRACEPTION
     Dosage: STARTED 13 YEARS AGO
     Route: 062

REACTIONS (5)
  - Ovarian cyst [Recovered/Resolved]
  - Wrong technique in drug usage process [Not Recovered/Not Resolved]
  - Off label use [Unknown]
  - Product adhesion issue [Recovered/Resolved]
  - Product quality issue [Unknown]
